FAERS Safety Report 7675316-6 (Version None)
Quarter: 2011Q3

REPORT INFORMATION
  Report Type: 
  Country: None (occurrence: None)
  Receive Date: 20110810
  Receipt Date: 20110806
  Transmission Date: 20111222
  Serious: Yes (Death)
  Sender: FDA-Public Use
  Company Number: EC-AMGEN-ECUSP2011040191

PATIENT
  Age: 60 Year
  Sex: Male

DRUGS (5)
  1. CYCLOPHOSPHAMIDE [Concomitant]
     Dosage: 1200 MG, UNK
     Route: 042
     Dates: start: 20110201, end: 20110701
  2. NEULASTIM [Suspect]
     Indication: NEUTROPENIA
     Dosage: 6 MG, UNK
     Route: 058
     Dates: start: 20110301, end: 20110701
  3. DOXORUBICIN HCL [Concomitant]
     Dosage: UNK
     Dates: start: 20110201, end: 20110701
  4. VINCRISTINE [Concomitant]
     Dosage: 75 MG, UNK
     Route: 042
     Dates: start: 20110201
  5. MABTHERA [Suspect]
     Dosage: 600 MG, UNK
     Route: 042
     Dates: start: 20110201, end: 20110701

REACTIONS (1)
  - DEATH [None]
